FAERS Safety Report 10146753 (Version 1)
Quarter: 2014Q2

REPORT INFORMATION
  Report Type: Spontaneous
  Country: US (occurrence: US)
  Receive Date: 20140501
  Receipt Date: 20140501
  Transmission Date: 20141212
  Serious: No
  Sender: FDA-Public Use
  Company Number: US-BAUSCH-BL-2013-005198

PATIENT
  Age: 84 Year
  Sex: Female

DRUGS (2)
  1. LOTEMAX (LOTEPREDNOL ETABONATE OPHTHALMIC SUSPENSION 0.5%) [Suspect]
     Indication: DRY EYE
     Dosage: 1 DROP; TWICE A DAY; RIGHT EYE
     Route: 047
     Dates: start: 20130910, end: 20130918
  2. LOTEMAX (LOTEPREDNOL ETABONATE OPHTHALMIC SUSPENSION 0.5%) [Suspect]
     Indication: CONJUNCTIVITIS ALLERGIC
     Dosage: 1 DROP; TWICE A DAY; LEFT EYE
     Route: 047
     Dates: start: 20130910, end: 20130918

REACTIONS (2)
  - Off label use [Recovered/Resolved]
  - Hypersensitivity [Recovered/Resolved]
